FAERS Safety Report 4989680-X (Version None)
Quarter: 2006Q2

REPORT INFORMATION
  Report Type: 
  Country: None (occurrence: None)
  Receive Date: 20060426
  Receipt Date: 20060406
  Transmission Date: 20061013
  Serious: Yes (Hospitalization)
  Sender: FDA-Public Use
  Company Number: US200604001198

PATIENT
  Age: 76 Year
  Sex: Male

DRUGS (1)
  1. HUMATROPE [Suspect]
     Dates: start: 20040101

REACTIONS (4)
  - BACK INJURY [None]
  - JOINT INJURY [None]
  - PHARMACEUTICAL PRODUCT COMPLAINT [None]
  - UPPER LIMB FRACTURE [None]
